FAERS Safety Report 6754161-X (Version None)
Quarter: 2010Q2

REPORT INFORMATION
  Report Type: 
  Country: None (occurrence: None)
  Receive Date: 20100603
  Receipt Date: 20100527
  Transmission Date: 20101027
  Serious: Yes (Hospitalization, Other)
  Sender: FDA-Public Use
  Company Number: PHHO2010ES07283

PATIENT
  Sex: Male
  Weight: 72 kg

DRUGS (6)
  1. AFINITOR [Suspect]
     Dosage: 10 MG
     Route: 048
     Dates: start: 20100415, end: 20100512
  2. ADIRO [Concomitant]
     Indication: THROMBOSIS PROPHYLAXIS
  3. MORPHINE [Concomitant]
     Indication: BACK PAIN
  4. FENTANYL [Concomitant]
     Indication: BACK PAIN
  5. RANITIDINE [Concomitant]
     Indication: HYPERTENSION
  6. ANALGESICS [Concomitant]

REACTIONS (5)
  - ASTHENIA [None]
  - ATRIAL FLUTTER [None]
  - DYSPNOEA [None]
  - PYREXIA [None]
  - RENAL FAILURE ACUTE [None]
